FAERS Safety Report 7301756-0 (Version None)
Quarter: 2011Q1

REPORT INFORMATION
  Report Type: 
  Country: None (occurrence: None)
  Receive Date: 20110218
  Receipt Date: 20110215
  Transmission Date: 20110831
  Serious: Yes (Other)
  Sender: FDA-Public Use
  Company Number: A0893021A

PATIENT
  Age: 62 Year
  Sex: Male
  Weight: 62.7 kg

DRUGS (3)
  1. LANTUS [Concomitant]
  2. VOTRIENT [Suspect]
     Dosage: 800MG PER DAY
     Route: 048
     Dates: start: 20101001
  3. NOVOLOG [Concomitant]

REACTIONS (8)
  - BODY TEMPERATURE DECREASED [None]
  - BLOOD GLUCOSE DECREASED [None]
  - DISORIENTATION [None]
  - CONVULSION [None]
  - MEDICATION ERROR [None]
  - SOMNOLENCE [None]
  - LOSS OF CONSCIOUSNESS [None]
  - DIABETIC COMA [None]
